FAERS Safety Report 25641448 (Version 5)
Quarter: 2025Q3

REPORT INFORMATION
  Report Type: Spontaneous
  Country: GB (occurrence: GB)
  Receive Date: 20250804
  Receipt Date: 20250922
  Transmission Date: 20251020
  Serious: No
  Sender: PFIZER
  Company Number: GB-PFIZER INC-202500149614

PATIENT
  Age: 58 Year
  Sex: Female

DRUGS (2)
  1. GENOTROPIN [Suspect]
     Active Substance: SOMATROPIN
     Dosage: TAKE 0.7 MG AND 0.6 MG ON ALTERNATE DAYS
     Route: 058
  2. GENOTROPIN [Suspect]
     Active Substance: SOMATROPIN
     Dosage: TAKE 0.7 MG AND 0.6 MG ON ALTERNATE DAYS
     Route: 058

REACTIONS (1)
  - Device breakage [Unknown]
